FAERS Safety Report 16995242 (Version 1)
Quarter: 2019Q4

REPORT INFORMATION
  Report Type: Spontaneous
  Country: DE (occurrence: DE)
  Receive Date: 20191105
  Receipt Date: 20191105
  Transmission Date: 20200122
  Serious: Yes (Other)
  Sender: FDA-Public Use
  Company Number: DE-NAPPMUNDI-GBR-2019-0072170

PATIENT
  Sex: Male
  Weight: 84 kg

DRUGS (3)
  1. CODEINE W/PARACETAMOL [Concomitant]
     Active Substance: ACETAMINOPHEN\CODEINE PHOSPHATE
     Dosage: 60/1000 MG DAILY
     Dates: start: 20191020, end: 20191023
  2. OXYCODONE HYDROCHLORIDE. [Suspect]
     Active Substance: OXYCODONE HYDROCHLORIDE
     Indication: PRODUCT USED FOR UNKNOWN INDICATION
     Dosage: 5 MG, TID (STRENGTH 5MG)
     Route: 065
     Dates: start: 20191022, end: 20191023
  3. TRAMADOLOR [Concomitant]
     Active Substance: TRAMADOL
     Dosage: 100 MG, SINGLE
     Dates: start: 20191023, end: 20191023

REACTIONS (3)
  - Cardiovascular disorder [Unknown]
  - Respiratory distress [Unknown]
  - Incorrect dose administered [Unknown]
